FAERS Safety Report 6745395-9 (Version None)
Quarter: 2010Q2

REPORT INFORMATION
  Report Type: 
  Country: None (occurrence: None)
  Receive Date: 20100528
  Receipt Date: 20100521
  Transmission Date: 20101027
  Serious: No
  Sender: FDA-Public Use
  Company Number: 2009BI039905

PATIENT
  Sex: Female

DRUGS (2)
  1. TYSABRI [Suspect]
     Indication: MULTIPLE SCLEROSIS
     Route: 042
     Dates: start: 20071009
  2. AVONEX [Concomitant]
     Indication: MULTIPLE SCLEROSIS
     Route: 030

REACTIONS (4)
  - ABASIA [None]
  - ASTHENIA [None]
  - DEPRESSION [None]
  - GAIT DISTURBANCE [None]
